FAERS Safety Report 17377190 (Version 1)
Quarter: 2020Q1

REPORT INFORMATION
  Report Type: Spontaneous
  Country: CH (occurrence: CH)
  Receive Date: 20200206
  Receipt Date: 20200206
  Transmission Date: 20200409
  Serious: Yes (Hospitalization)
  Sender: FDA-Public Use
  Company Number: CH-ASTRAZENECA-2020SE15233

PATIENT
  Age: 6158 Day
  Sex: Female

DRUGS (13)
  1. ASPIRIN CARDIO [Suspect]
     Active Substance: ASPIRIN
     Route: 048
     Dates: start: 20180604, end: 20180611
  2. GENTAMICIN. [Suspect]
     Active Substance: GENTAMICIN
     Indication: ENDOCARDITIS
     Route: 041
     Dates: start: 20180508, end: 20180509
  3. CO-AMOXI [Suspect]
     Active Substance: AMOXICILLIN\CLAVULANATE POTASSIUM
     Indication: ENDOCARDITIS
     Dosage: 3.0G UNKNOWN
     Route: 041
     Dates: start: 20180508, end: 20180526
  4. TEMESTA [Concomitant]
  5. NEXIUM [Suspect]
     Active Substance: ESOMEPRAZOLE MAGNESIUM
     Route: 048
     Dates: start: 20180524, end: 20180526
  6. CLEXANE [Concomitant]
     Active Substance: ENOXAPARIN SODIUM
  7. CLAMOXYL (AMOXICILLIN) [Suspect]
     Active Substance: AMOXICILLIN
     Indication: ENDOCARDITIS
     Route: 041
     Dates: start: 20180508, end: 20190527
  8. ASPIRIN CARDIO [Suspect]
     Active Substance: ASPIRIN
     Route: 048
     Dates: start: 20180515, end: 20180827
  9. CLAMOXYL (AMOXICILLIN) [Suspect]
     Active Substance: AMOXICILLIN
     Indication: ENDOCARDITIS
     Route: 041
     Dates: start: 20180527, end: 20180530
  10. DAFALGAN [Concomitant]
     Active Substance: ACETAMINOPHEN
  11. CO-AMOXI [Suspect]
     Active Substance: AMOXICILLIN\CLAVULANATE POTASSIUM
     Indication: ENDOCARDITIS
     Dosage: 2.2G UNKNOWN
     Route: 041
     Dates: start: 20180526, end: 20180527
  12. CO-AMOXI [Suspect]
     Active Substance: AMOXICILLIN\CLAVULANATE POTASSIUM
     Indication: ENDOCARDITIS
     Dosage: 1.0G UNKNOWN
     Route: 041
     Dates: start: 20180527, end: 20180530
  13. CO-AMOXI [Suspect]
     Active Substance: AMOXICILLIN\CLAVULANATE POTASSIUM
     Indication: ENDOCARDITIS
     Dosage: 2.0G UNKNOWN
     Route: 041
     Dates: start: 20180530, end: 20180611

REACTIONS (2)
  - Renal failure [Recovered/Resolved]
  - Tubulointerstitial nephritis [Recovered/Resolved]

NARRATIVE: CASE EVENT DATE: 20180509
